FAERS Safety Report 5315158-X (Version None)
Quarter: 2007Q2

REPORT INFORMATION
  Report Type: 
  Country: None (occurrence: None)
  Receive Date: 20070427
  Receipt Date: 20070412
  Transmission Date: 20071010
  Serious: Yes (Other)
  Sender: FDA-Public Use
  Company Number: S07-FRA-00375-01

PATIENT
  Age: 86 Year
  Sex: Male

DRUGS (4)
  1. EBIXA (MEMANTINE) [Suspect]
     Indication: DEMENTIA ALZHEIMER'S TYPE
     Dosage: 5 MG QD PO
     Route: 048
     Dates: start: 20061120, end: 20061124
  2. ARICEPT [Concomitant]
  3. XATRAL (ALFUZOSIN) [Concomitant]
  4. TOCOPHEROX [Concomitant]

REACTIONS (2)
  - DISORIENTATION [None]
  - HALLUCINATION [None]
